FAERS Safety Report 6340750-3 (Version None)
Quarter: 2009Q3

REPORT INFORMATION
  Report Type: 
  Country: None (occurrence: None)
  Receive Date: 20090904
  Receipt Date: 20090902
  Transmission Date: 20100115
  Serious: Yes (Hospitalization)
  Sender: FDA-Public Use
  Company Number: US-BRISTOL-MYERS SQUIBB COMPANY-14759658

PATIENT
  Age: 68 Year
  Sex: Female

DRUGS (1)
  1. ABILIFY [Suspect]
     Dosage: 3 DF = 3 PILLS

REACTIONS (3)
  - ASTHENIA [None]
  - INCOHERENT [None]
  - RENAL FAILURE ACUTE [None]
